FAERS Safety Report 20177168 (Version 1)
Quarter: 2021Q4

REPORT INFORMATION
  Report Type: Spontaneous
  Country: IT (occurrence: SE)
  Receive Date: 20211213
  Receipt Date: 20211213
  Transmission Date: 20220303
  Serious: Yes (Disabling)
  Sender: FDA-Public Use
  Company Number: None

PATIENT

DRUGS (2)
  1. LATUDA [Suspect]
     Active Substance: LURASIDONE HYDROCHLORIDE
     Indication: Bipolar disorder
     Dosage: 74 MG, QD (1 TABLET/DAY)
     Route: 048
     Dates: start: 20211022
  2. LITHIUM SULFATE [Concomitant]
     Active Substance: LITHIUM SULFATE
     Dosage: 4 TABLETS 2GGR/DAY
     Route: 048
     Dates: start: 20210301

REACTIONS (3)
  - Periodontitis [Not Recovered/Not Resolved]
  - Oral mucosal blistering [Not Recovered/Not Resolved]
  - Off label use [Unknown]

NARRATIVE: CASE EVENT DATE: 20211108
